FAERS Safety Report 4801800-6 (Version None)
Quarter: 2005Q4

REPORT INFORMATION
  Report Type: 
  Country: None (occurrence: None)
  Receive Date: 20051018
  Receipt Date: 20051006
  Transmission Date: 20060501
  Serious: Yes (Other)
  Sender: FDA-Public Use
  Company Number: DE-BRISTOL-MYERS SQUIBB COMPANY-13137922

PATIENT
  Age: 40 Year
  Sex: Male
  Weight: 62 kg

DRUGS (5)
  1. REYATAZ [Suspect]
     Indication: HIV INFECTION
     Dates: start: 20050118
  2. COMBIVIR [Suspect]
     Indication: HIV INFECTION
     Dates: start: 20050118
  3. TENOFOVIR [Suspect]
     Indication: HIV INFECTION
     Dates: start: 20050118
  4. RITONAVIR [Suspect]
     Indication: HIV INFECTION
     Dates: start: 20050118
  5. COTRIM [Suspect]

REACTIONS (2)
  - HYPERBILIRUBINAEMIA [None]
  - PANCREATITIS RELAPSING [None]
